FAERS Safety Report 7952864-2 (Version None)
Quarter: 2011Q4

REPORT INFORMATION
  Report Type: 
  Country: None (occurrence: None)
  Receive Date: 20111201
  Receipt Date: 20111122
  Transmission Date: 20120403
  Serious: Yes (Life-Threatening, Hospitalization)
  Sender: FDA-Public Use
  Company Number: US-BAYER-2011-061209

PATIENT
  Age: 30 Year
  Sex: Female
  Weight: 59.41 kg

DRUGS (4)
  1. MOTRIN [Concomitant]
  2. NEXIUM [Concomitant]
     Dosage: 40 MG, DAILY
  3. YASMIN [Suspect]
     Indication: CONTRACEPTION
     Dosage: UNK
     Dates: start: 20030923, end: 20041001
  4. YASMIN [Suspect]
     Dosage: UNK
     Dates: start: 20040129, end: 20041001

REACTIONS (5)
  - EMOTIONAL DISTRESS [None]
  - CHOLECYSTITIS CHRONIC [None]
  - PAIN [None]
  - CHOLELITHIASIS [None]
  - ANHEDONIA [None]
